FAERS Safety Report 9957173 (Version 1)
Quarter: 2014Q1

REPORT INFORMATION
  Report Type: Report from Study
  Country: US (occurrence: US)
  Receive Date: 20140304
  Receipt Date: 20140304
  Transmission Date: 20141002
  Serious: No
  Sender: FDA-Public Use
  Company Number: US-ABBVIE-13P-163-1097747-00

PATIENT
  Age: 60 Year
  Sex: Male

DRUGS (3)
  1. HUMIRA [Suspect]
     Indication: COLITIS ULCERATIVE
     Dates: start: 20130430, end: 20130430
  2. HUMIRA [Suspect]
     Dates: start: 20130514, end: 20130514
  3. HUMIRA [Suspect]
     Dates: start: 20130528

REACTIONS (3)
  - Alopecia [Not Recovered/Not Resolved]
  - Muscle spasms [Not Recovered/Not Resolved]
  - Pain in extremity [Not Recovered/Not Resolved]
